FAERS Safety Report 5003935-4 (Version None)
Quarter: 2006Q2

REPORT INFORMATION
  Report Type: 
  Country: None (occurrence: None)
  Receive Date: 20060517
  Receipt Date: 20060505
  Transmission Date: 20061013
  Serious: Yes (Hospitalization)
  Sender: FDA-Public Use
  Company Number: US-SANOFI-SYNTHELABO-A03200602860

PATIENT
  Age: 84 Year
  Sex: Male
  Weight: 72.6 kg

DRUGS (5)
  1. AMBIEN [Suspect]
     Indication: DRUG USE FOR UNKNOWN INDICATION
     Route: 048
     Dates: start: 20060101
  2. ATIVAN [Suspect]
     Dosage: UNK
     Route: 048
     Dates: start: 20060101
  3. AMANTADINE HCL [Suspect]
     Indication: PARKINSON'S DISEASE
     Route: 048
     Dates: end: 20060301
  4. ASPIRIN [Concomitant]
     Route: 048
  5. SINEMET [Concomitant]
     Indication: DRUG USE FOR UNKNOWN INDICATION
     Dosage: UNK
     Route: 048

REACTIONS (3)
  - CONVULSION [None]
  - DYSPHAGIA [None]
  - HYPERSOMNIA [None]
